FAERS Safety Report 20338507 (Version 2)
Quarter: 2022Q1

REPORT INFORMATION
  Report Type: Spontaneous
  Country: US (occurrence: None)
  Receive Date: 20220116
  Receipt Date: 20220315
  Transmission Date: 20220424
  Serious: No
  Sender: FDA-Public Use
  Company Number: 2022A006595

PATIENT
  Age: 33412 Day
  Sex: Female

DRUGS (2)
  1. SYMBICORT [Suspect]
     Active Substance: BUDESONIDE\FORMOTEROL FUMARATE DIHYDRATE
     Indication: Asthma
     Dosage: 160/4.5 UNKNOWN
     Route: 055
  2. SYMBICORT [Suspect]
     Active Substance: BUDESONIDE\FORMOTEROL FUMARATE DIHYDRATE
     Indication: Chronic obstructive pulmonary disease
     Dosage: 160/4.5 UNKNOWN
     Route: 055

REACTIONS (4)
  - Hypoacusis [Unknown]
  - Device use issue [Unknown]
  - Device defective [Unknown]
  - Device malfunction [Unknown]

NARRATIVE: CASE EVENT DATE: 20211221
